FAERS Safety Report 24769813 (Version 2)
Quarter: 2025Q4

REPORT INFORMATION
  Report Type: Spontaneous
  Country: US (occurrence: US)
  Receive Date: 20241224
  Receipt Date: 20251221
  Transmission Date: 20260118
  Serious: Yes (Other)
  Sender: COOPERSURGICAL
  Company Number: US-COOPERSURGICAL, INC.-2024CPS004005

PATIENT
  Age: 38 Year
  Sex: Female
  Weight: 68.934 kg

DRUGS (2)
  1. PARAGARD T 380A [Suspect]
     Active Substance: COPPER
     Indication: Contraception
     Dosage: UNK
     Route: 015
     Dates: start: 20080318, end: 20180112
  2. LOSARTAN [Concomitant]
     Active Substance: LOSARTAN
     Dosage: UNK
     Dates: start: 20150101, end: 20190919

REACTIONS (14)
  - Hysterectomy [Recovered/Resolved]
  - Iron deficiency anaemia [Recovering/Resolving]
  - Device breakage [Recovered/Resolved]
  - Foreign body in reproductive tract [Recovered/Resolved]
  - Complication of device removal [Recovered/Resolved]
  - Embedded device [Recovered/Resolved]
  - Abnormal uterine bleeding [Recovered/Resolved]
  - Procedural haemorrhage [Recovered/Resolved]
  - Complication associated with device [Recovered/Resolved]
  - Contusion [Recovered/Resolved]
  - Vulvitis [Unknown]
  - Pelvic pain [Recovered/Resolved]
  - Abdominal pain [Recovered/Resolved]
  - Bacterial vaginosis [Unknown]

NARRATIVE: CASE EVENT DATE: 20080318
